FAERS Safety Report 12418475 (Version 1)
Quarter: 2016Q2

REPORT INFORMATION
  Report Type: Spontaneous
  Country: US (occurrence: US)
  Receive Date: 20160531
  Receipt Date: 20160531
  Transmission Date: 20160815
  Serious: No
  Sender: FDA-Public Use
  Company Number: US-TEVA-656708USA

PATIENT
  Sex: Female
  Weight: 44.95 kg

DRUGS (1)
  1. HYDRALAZINE [Suspect]
     Active Substance: HYDRALAZINE HYDROCHLORIDE
     Indication: NEOPLASM MALIGNANT
     Route: 065

REACTIONS (6)
  - Erythema annulare [Unknown]
  - Eczema [Unknown]
  - Rash [Unknown]
  - Memory impairment [Unknown]
  - Fatigue [Unknown]
  - Mouth ulceration [Unknown]
